FAERS Safety Report 5316715-7 (Version None)
Quarter: 2007Q2

REPORT INFORMATION
  Report Type: 
  Country: None (occurrence: None)
  Receive Date: 20070501
  Receipt Date: 20070501
  Transmission Date: 20071010
  Serious: Yes (Hospitalization)
  Sender: FDA-Public Use
  Company Number: None

PATIENT
  Age: 44 Year
  Sex: Male
  Weight: 95 kg

DRUGS (2)
  1. CARBOPLATIN [Suspect]
     Dosage: 1584 MG
  2. TAXOL [Suspect]
     Dosage: 630 MG

REACTIONS (8)
  - ABSCESS [None]
  - ADRENAL HAEMORRHAGE [None]
  - ADRENAL MASS [None]
  - DISEASE PROGRESSION [None]
  - EFFUSION [None]
  - FATIGUE [None]
  - HAEMOGLOBIN DECREASED [None]
  - RECTAL ABSCESS [None]
